FAERS Safety Report 17926032 (Version 4)
Quarter: 2020Q3

REPORT INFORMATION
  Report Type: Report from Study
  Country: NL (occurrence: NL)
  Receive Date: 20200622
  Receipt Date: 20200917
  Transmission Date: 20201103
  Serious: Yes (Death, Life-Threatening, Hospitalization, Other)
  Sender: FDA-Public Use
  Company Number: NL-AMGEN-NLDSL2020080883

PATIENT
  Age: 75 Year
  Sex: Male

DRUGS (15)
  1. CLOPIDOGREL [Concomitant]
     Active Substance: CLOPIDOGREL BISULFATE
     Dosage: 75 MILLIGRAM
  2. COLECALCIFEROL [Concomitant]
     Active Substance: CHOLECALCIFEROL
     Dosage: 5600IE 1W1C
  3. FENTANYL. [Concomitant]
     Active Substance: FENTANYL
     Dosage: 50UG/HOUR (GENERIC+DUROGESIC) 1DD1PL
  4. METOPROLOL. [Concomitant]
     Active Substance: METOPROLOL
     Dosage: 25 MILLIGRAM, QD
  5. XGEVA [Suspect]
     Active Substance: DENOSUMAB
     Indication: PROPHYLAXIS
     Dosage: 120 MILLIGRAM/1.7 ML
     Route: 065
     Dates: start: 20200324, end: 20200421
  6. ETORICOXIB. [Concomitant]
     Active Substance: ETORICOXIB
     Dosage: 90 MILLIGRAM, QD
  7. PARACETAMOL [Concomitant]
     Active Substance: ACETAMINOPHEN
     Dosage: 500 MILLIGRAM, 4D2T
  8. AMITRIPTYLINE [Concomitant]
     Active Substance: AMITRIPTYLINE
     Dosage: 25 MILLIGRAM (28,3MG AMITRIPT. HCL) 1D2T
  9. FENTANYL. [Concomitant]
     Active Substance: FENTANYL
     Dosage: 100UG/HOUR (GENERIC+DUROGESIC) ONCE IN 2 DAYS 1 PLASTERUNK
  10. NALOXEGOL [Concomitant]
     Active Substance: NALOXEGOL
     Dosage: 25 MILLIGRAM, QD
  11. LEUPRORELINE [Concomitant]
     Active Substance: LEUPROLIDE
     Dosage: 45 MILLIGRAM, 1MZ1IJ
  12. PREDNISOLON [PREDNISOLONE] [Concomitant]
     Active Substance: PREDNISOLONE
     Dosage: 5 MILLIGRAM, 1D4T
  13. DOLOPHINE [Concomitant]
     Active Substance: METHADONE HYDROCHLORIDE
     Dosage: 5 MILLIGRAM, 3D1T
  14. OXYCODON [Concomitant]
     Active Substance: OXYCODONE
     Dosage: 20 MILLIGRAM
  15. PANTOPRAZOL [PANTOPRAZOLE] [Concomitant]
     Active Substance: PANTOPRAZOLE
     Dosage: 20 MILLIGRAM, QD

REACTIONS (4)
  - Death [Fatal]
  - Pneumonia [Unknown]
  - Delirium [Unknown]
  - Bacterial infection [Unknown]

NARRATIVE: CASE EVENT DATE: 2020
